FAERS Safety Report 16147125 (Version 1)
Quarter: 2019Q2

REPORT INFORMATION
  Report Type: Spontaneous
  Country: US (occurrence: US)
  Receive Date: 20190402
  Receipt Date: 20190402
  Transmission Date: 20190711
  Serious: No
  Sender: FDA-Public Use
  Company Number: US-TEVA-2019-US-1029284

PATIENT
  Sex: Male

DRUGS (1)
  1. AMLODIPINE BESYLATE TEVA TABLETS 5MG [Suspect]
     Active Substance: AMLODIPINE BESYLATE
     Route: 065

REACTIONS (1)
  - Peripheral swelling [Unknown]
